FAERS Safety Report 14849232 (Version 4)
Quarter: 2019Q2

REPORT INFORMATION
  Report Type: Spontaneous
  Country: US (occurrence: US)
  Receive Date: 20180504
  Receipt Date: 20190524
  Transmission Date: 20190711
  Serious: Yes (Hospitalization, Other)
  Sender: FDA-Public Use
  Company Number: US-IMPAX LABORATORIES, INC-2018-IPXL-01376

PATIENT
  Age: 74 Year
  Sex: Female

DRUGS (9)
  1. CARVEDILOL. [Suspect]
     Active Substance: CARVEDILOL
     Dosage: 6.25 MG, ONE AT NIGHT
     Route: 065
  2. CARVEDILOL. [Suspect]
     Active Substance: CARVEDILOL
     Indication: HYPERTENSION
     Dosage: 6.25 MG, TWICE A DAY
     Route: 065
  3. BABY ASPIRIN [Concomitant]
     Active Substance: ASPIRIN
     Indication: PRODUCT USED FOR UNKNOWN INDICATION
     Dosage: 81 MG, UNK
     Route: 065
  4. RYTARY [Suspect]
     Active Substance: CARBIDOPA\LEVODOPA
     Indication: PARKINSON^S DISEASE
     Dosage: 36.25/145 MG, TWO CAP EVERY SIX HRS
     Route: 065
     Dates: start: 20180306, end: 20180306
  5. RYTARY [Suspect]
     Active Substance: CARBIDOPA\LEVODOPA
     Dosage: 36.25/145 MG, TWO CAPSULES EVERY SIX HOURS
     Route: 065
     Dates: start: 201803
  6. RYTARY [Suspect]
     Active Substance: CARBIDOPA\LEVODOPA
     Dosage: 36.25/145 MG,2 CAPS EVERY SIX HRS, 6HRS APART 7AM-1PM-7PM
     Route: 048
  7. METFORMIN [Concomitant]
     Active Substance: METFORMIN HYDROCHLORIDE
     Indication: DIABETES MELLITUS
     Dosage: 500 MG AS NEEDED
     Route: 065
  8. LEVOTHYROXINE. [Concomitant]
     Active Substance: LEVOTHYROXINE
     Indication: THYROID DISORDER
     Dosage: 50 MG, ONE A DAY
     Route: 065
  9. RYTARY [Suspect]
     Active Substance: CARBIDOPA\LEVODOPA
     Dosage: 36.25/145 MG, TWO CAPSULE IN MORNING, TWO IN EVENING AND ONE AT NIGHT
     Route: 065
     Dates: start: 20180307, end: 201803

REACTIONS (12)
  - White blood cell count decreased [Unknown]
  - Tremor [Recovering/Resolving]
  - Therapeutic product effect incomplete [Unknown]
  - Hypokinesia [Recovering/Resolving]
  - Cystitis [Unknown]
  - Influenza [Unknown]
  - Malaise [Unknown]
  - Fall [Unknown]
  - Weight decreased [Unknown]
  - Asthenia [Unknown]
  - Loss of consciousness [Recovered/Resolved]
  - Vomiting [Unknown]

NARRATIVE: CASE EVENT DATE: 201803
